FAERS Safety Report 4686758-5 (Version None)
Quarter: 2005Q2

REPORT INFORMATION
  Report Type: 
  Country: None (occurrence: None)
  Receive Date: 20050608
  Receipt Date: 20050222
  Transmission Date: 20051028
  Serious: Yes (Life-Threatening, Hospitalization, Other)
  Sender: FDA-Public Use
  Company Number: 2003019901

PATIENT
  Age: 69 Year
  Sex: Female

DRUGS (5)
  1. NEURONTIN [Suspect]
     Indication: DIABETIC NEUROPATHY
     Dosage: 800 MG (400 MG, 2 IN 1 D), ORAL
     Route: 048
     Dates: start: 20030303, end: 20030429
  2. ATORVASTATIN CALCIUM [Concomitant]
  3. GLICLAZIDE (GLICLAZIDE) [Concomitant]
  4. IRBESARTAN [Concomitant]
  5. METFORMIN HCL [Concomitant]

REACTIONS (19)
  - ARTHRITIS [None]
  - ASTHENIA [None]
  - CONJUNCTIVAL HYPERAEMIA [None]
  - CORNEAL DISORDER [None]
  - COUGH [None]
  - DRUG HYPERSENSITIVITY [None]
  - HYPOSIDERAEMIA [None]
  - IMPETIGO [None]
  - LEUKOPENIA [None]
  - OEDEMA PERIPHERAL [None]
  - PLATELET COUNT DECREASED [None]
  - POOR VENOUS ACCESS [None]
  - RASH ERYTHEMATOUS [None]
  - RENAL FAILURE [None]
  - RHABDOMYOLYSIS [None]
  - TOXIC EPIDERMAL NECROLYSIS [None]
  - UVEITIS [None]
  - VISUAL DISTURBANCE [None]
  - VITREOUS DISORDER [None]
